FAERS Safety Report 6829810-8 (Version None)
Quarter: 2010Q3

REPORT INFORMATION
  Report Type: 
  Country: None (occurrence: None)
  Receive Date: 20100709
  Receipt Date: 20091118
  Transmission Date: 20110219
  Serious: No
  Sender: FDA-Public Use
  Company Number: US-PFIZER INC-2007017308

PATIENT
  Sex: Female
  Weight: 48.1 kg

DRUGS (6)
  1. CHANTIX [Suspect]
     Indication: SMOKING CESSATION THERAPY
     Dates: start: 20070215
  2. ACETYLSALICYLIC ACID [Concomitant]
  3. VERAPAMIL [Concomitant]
  4. COREG [Concomitant]
  5. CATAPRES [Concomitant]
  6. VASOTEC [Concomitant]

REACTIONS (3)
  - DYSPHONIA [None]
  - NAUSEA [None]
  - VOMITING [None]
